FAERS Safety Report 13656198 (Version 5)
Quarter: 2018Q3

REPORT INFORMATION
  Report Type: Report from Study
  Country: DE (occurrence: DE)
  Receive Date: 20170615
  Receipt Date: 20180803
  Transmission Date: 20181010
  Serious: Yes (Death, Hospitalization, Other)
  Sender: FDA-Public Use
  Company Number: PHHY2017DE051682

PATIENT
  Age: 62 Year
  Sex: Male
  Weight: 100 kg

DRUGS (14)
  1. COSENTYX [Suspect]
     Active Substance: SECUKINUMAB
     Indication: PSORIASIS
     Dosage: 300 MG, UNK/PER APPLICATION
     Route: 058
     Dates: start: 20160210
  2. EFIENT [Concomitant]
     Active Substance: PRASUGREL HYDROCHLORIDE
     Indication: PRODUCT USED FOR UNKNOWN INDICATION
     Route: 065
  3. FUROSEMIDE. [Concomitant]
     Active Substance: FUROSEMIDE
     Indication: PRODUCT USED FOR UNKNOWN INDICATION
     Dosage: 40 MG, UNK
     Route: 048
  4. IBUPROFEN. [Concomitant]
     Active Substance: IBUPROFEN
     Indication: BURSITIS
     Dosage: 800 MG, QD
     Route: 048
     Dates: start: 20170316
  5. ATORVASTATIN [Concomitant]
     Active Substance: ATORVASTATIN
     Indication: PRODUCT USED FOR UNKNOWN INDICATION
     Dosage: 20 MG, UNK
     Route: 048
  6. COSENTYX [Suspect]
     Active Substance: SECUKINUMAB
     Dosage: 300 MG, UNK/PER APPLICATION
     Route: 058
     Dates: start: 20170308
  7. ALLOPURINOL. [Concomitant]
     Active Substance: ALLOPURINOL
     Indication: HYPERURICAEMIA
     Dosage: 300 MG, QD
     Route: 048
  8. PANTOZOL [Concomitant]
     Active Substance: PANTOPRAZOLE SODIUM
     Indication: PRODUCT USED FOR UNKNOWN INDICATION
     Dosage: 40 MG, UNK
     Route: 048
  9. INDAPAMIDE. [Concomitant]
     Active Substance: INDAPAMIDE
     Indication: PRODUCT USED FOR UNKNOWN INDICATION
     Dosage: 2.5 MG, UNK
     Route: 048
  10. BISOPROLOL [Concomitant]
     Active Substance: BISOPROLOL
     Indication: PRODUCT USED FOR UNKNOWN INDICATION
     Dosage: 3.75 MG, UNK
     Route: 048
  11. ALLOPURINOL. [Concomitant]
     Active Substance: ALLOPURINOL
     Dosage: 300 MG, UNK
     Route: 048
  12. VALSARTAN. [Concomitant]
     Active Substance: VALSARTAN
     Indication: PRODUCT USED FOR UNKNOWN INDICATION
     Dosage: 80 MG, UNK
     Route: 048
  13. ASPIRIN. [Concomitant]
     Active Substance: ASPIRIN
     Indication: CORONARY ARTERY DISEASE
     Dosage: 100 MG, QD
     Route: 065
  14. INUVAIR [Concomitant]
     Active Substance: BECLOMETHASONE DIPROPIONATE\FORMOTEROL FUMARATE
     Indication: CHRONIC OBSTRUCTIVE PULMONARY DISEASE
     Dosage: 1 DF (100/6 UG), UNK
     Route: 065

REACTIONS (37)
  - Urine output decreased [Fatal]
  - Blood sodium decreased [Fatal]
  - Blood urea increased [Fatal]
  - Hepatic failure [Fatal]
  - Gamma-glutamyltransferase increased [Fatal]
  - Pneumonia [Unknown]
  - Gait disturbance [Unknown]
  - Red cell distribution width increased [Unknown]
  - Haemoglobin decreased [Unknown]
  - Dyspnoea exertional [Unknown]
  - Coronary artery disease [Recovering/Resolving]
  - Toxic neuropathy [Unknown]
  - Platelet distribution width decreased [Unknown]
  - Multiple organ dysfunction syndrome [Fatal]
  - Oedema peripheral [Fatal]
  - Bursitis [Recovering/Resolving]
  - Coronary artery stenosis [Unknown]
  - Osteoarthritis [Unknown]
  - Acute myocardial infarction [Unknown]
  - Dyspnoea [Unknown]
  - Nausea [Unknown]
  - Mean cell volume increased [Unknown]
  - Protein total decreased [Unknown]
  - Fibrin D dimer increased [Unknown]
  - Diarrhoea [Fatal]
  - Renal failure [Fatal]
  - Cough [Unknown]
  - Arteriosclerosis coronary artery [Unknown]
  - Thyroxine increased [Unknown]
  - Cardiac failure [Unknown]
  - Silent myocardial infarction [Unknown]
  - Vomiting [Unknown]
  - Angina pectoris [Unknown]
  - Hypokalaemia [Unknown]
  - Arthralgia [Unknown]
  - Blood lactate dehydrogenase increased [Unknown]
  - Red blood cell count decreased [Unknown]

NARRATIVE: CASE EVENT DATE: 20170401
